FAERS Safety Report 12200687 (Version 2)
Quarter: 2016Q2

REPORT INFORMATION
  Report Type: Spontaneous
  Country: US (occurrence: US)
  Receive Date: 20160322
  Receipt Date: 20160426
  Transmission Date: 20160815
  Serious: Yes (Other)
  Sender: FDA-Public Use
  Company Number: US-MDT-ADR-2016-00360

PATIENT
  Age: 27 Year
  Sex: Male

DRUGS (1)
  1. LIORESAL [Suspect]
     Active Substance: BACLOFEN
     Route: 037

REACTIONS (4)
  - Feeling abnormal [Recovered/Resolved]
  - Therapeutic response decreased [Recovered/Resolved]
  - Muscle spasticity [Recovered/Resolved]
  - Posturing [Recovered/Resolved]
